FAERS Safety Report 8911620 (Version 4)
Quarter: 2016Q1

REPORT INFORMATION
  Report Type: Report from Study
  Country: JP (occurrence: JP)
  Receive Date: 20121116
  Receipt Date: 20160108
  Transmission Date: 20160526
  Serious: Yes (Death, Life-Threatening)
  Sender: FDA-Public Use
  Company Number: JP-PFIZER INC-2012283344

PATIENT
  Age: 77 Year
  Sex: Male
  Weight: 56 kg

DRUGS (21)
  1. SELBEX [Concomitant]
     Active Substance: TEPRENONE
     Dosage: 50 MG, 3X/DAY
     Route: 048
     Dates: start: 20120816, end: 20120907
  2. TASMOLIN [Concomitant]
     Active Substance: BIPERIDEN
     Dosage: 1 MG, 4X/DAY
     Route: 048
     Dates: start: 20120830, end: 20120830
  3. TASMOLIN [Concomitant]
     Active Substance: BIPERIDEN
     Dosage: 1 MG, 2X/DAY
     Route: 048
     Dates: start: 20120831, end: 20120907
  4. BESACOLIN [Concomitant]
     Active Substance: BETHANECHOL CHLORIDE
     Dosage: 0.6 MG, 1X/DAY
     Route: 048
     Dates: start: 20120904, end: 20120907
  5. LASIX [Concomitant]
     Active Substance: FUROSEMIDE
     Dosage: 20 MG, 1X/DAY
     Dates: start: 20120908
  6. PROHEPARUM [Concomitant]
     Active Substance: CHOLINE BITARTRATE\CYSTEINE\INOSITOL\MAMMAL LIVER
     Dosage: 6 TABLETS PER DAY
     Route: 048
     Dates: start: 20120816, end: 20120907
  7. BASEN [Concomitant]
     Active Substance: VOGLIBOSE
     Dosage: 0.3 MG PER DAY
     Route: 048
     Dates: start: 20120904, end: 20120907
  8. LASIX [Concomitant]
     Active Substance: FUROSEMIDE
     Dosage: 20 MG, 2X/DAY
     Dates: start: 20120906, end: 20120906
  9. JANUVIA [Concomitant]
     Active Substance: SITAGLIPTIN PHOSPHATE
     Dosage: 50 MG PER DAY
     Route: 048
     Dates: start: 20120816, end: 20120907
  10. TAMSULOSIN HYDROCHLORIDE. [Concomitant]
     Active Substance: TAMSULOSIN HYDROCHLORIDE
     Dosage: 0.2 MG, 1X/DAY
     Route: 048
     Dates: start: 20120904, end: 20120907
  11. LASIX [Concomitant]
     Active Substance: FUROSEMIDE
     Dosage: 20 MG, 1X/DAY
     Route: 048
     Dates: start: 20120905, end: 20120906
  12. LASIX [Concomitant]
     Active Substance: FUROSEMIDE
     Dosage: 20 MG, 2X/DAY
     Route: 048
     Dates: start: 20120907, end: 20120907
  13. URSO [Concomitant]
     Active Substance: URSODIOL
     Dosage: 200 MG, 1X/DAY
     Route: 048
     Dates: start: 20120816, end: 20120907
  14. BASEN [Concomitant]
     Active Substance: VOGLIBOSE
     Dosage: 0.9 MG PER DAY
     Route: 048
     Dates: start: 20120816, end: 20120903
  15. RISPERDAL [Concomitant]
     Active Substance: RISPERIDONE
     Dosage: 1 MG, 2X/DAY
     Route: 048
     Dates: start: 20120831, end: 20120907
  16. NAIXAN [Concomitant]
     Active Substance: NAPROXEN SODIUM
     Dosage: 100 MG, 3X/DAY
     Route: 048
     Dates: start: 20120816, end: 20120907
  17. RISPERDAL [Concomitant]
     Active Substance: RISPERIDONE
     Dosage: 1 MG, 4X/DAY
     Route: 048
     Dates: start: 20120830, end: 20120830
  18. XALKORI [Suspect]
     Active Substance: CRIZOTINIB
     Indication: NON-SMALL CELL LUNG CANCER
     Dosage: 250 MG, 2X/DAY
     Route: 048
     Dates: start: 20120815, end: 20120907
  19. MAGNESIUM OXIDE. [Concomitant]
     Active Substance: MAGNESIUM OXIDE
     Dosage: 1.5 G PER DAY
     Route: 048
     Dates: start: 20120816, end: 20120907
  20. OXINORM (OXYCODONE HYDROCHLORIDE) [Concomitant]
     Active Substance: OXYCODONE HYDROCHLORIDE
     Dosage: 5 MG PER DAY
     Route: 048
     Dates: start: 20120829, end: 20120831
  21. LASIX [Concomitant]
     Active Substance: FUROSEMIDE
     Dosage: 20 MG, 1X/DAY
     Dates: start: 20120905, end: 20120905

REACTIONS (3)
  - Disease progression [Fatal]
  - Non-small cell lung cancer [Fatal]
  - Pneumonia aspiration [Recovering/Resolving]

NARRATIVE: CASE EVENT DATE: 20120908
